FAERS Safety Report 12747507 (Version 1)
Quarter: 2016Q3

REPORT INFORMATION
  Report Type: Spontaneous
  Country: US (occurrence: US)
  Receive Date: 20160915
  Receipt Date: 20160915
  Transmission Date: 20161109
  Serious: No
  Sender: FDA-Public Use
  Company Number: US-JAZZ-2016-US-009666

PATIENT
  Sex: Female

DRUGS (43)
  1. XYREM [Suspect]
     Active Substance: SODIUM OXYBATE
     Dosage: DOSE ADJUSTMNETS
     Route: 048
  2. SAME [Concomitant]
  3. VENOFER [Concomitant]
     Active Substance: IRON SUCROSE
  4. FIORICET [Concomitant]
     Active Substance: ACETAMINOPHEN\BUTALBITAL\CAFFEINE
  5. NUVIGIL [Concomitant]
     Active Substance: ARMODAFINIL
  6. SAVELLA [Concomitant]
     Active Substance: MILNACIPRAN HYDROCHLORIDE
  7. VITRON-C [Concomitant]
  8. MALARONE [Concomitant]
     Active Substance: ATOVAQUONE\PROGUANIL HYDROCHLORIDE
  9. METHYL B12 [Concomitant]
  10. VALACYCLOVIR HCL [Concomitant]
     Active Substance: VALACYCLOVIR HYDROCHLORIDE
  11. DEXMETHYLPHENIDATE [Concomitant]
     Active Substance: DEXMETHYLPHENIDATE HYDROCHLORIDE
  12. CULTURELLE [Concomitant]
     Active Substance: LACTOBACILLUS RHAMNOSUS
  13. ALPHA LIPOIC ACID [Concomitant]
     Active Substance: .ALPHA.-LIPOIC ACID
  14. N-ACETYL-L-CYSTEINE [Concomitant]
     Active Substance: ACETYLCYSTEINE
  15. LOTEMAX [Concomitant]
     Active Substance: LOTEPREDNOL ETABONATE
  16. MIRENA [Concomitant]
     Active Substance: LEVONORGESTREL
  17. VITAMIN C [Concomitant]
     Active Substance: ASCORBIC ACID
  18. GLUTATHIONE [Concomitant]
     Active Substance: GLUTATHIONE
  19. ULTRAM [Concomitant]
     Active Substance: TRAMADOL HYDROCHLORIDE
  20. VITAMIN E [Concomitant]
     Active Substance: .ALPHA.-TOCOPHEROL
  21. MINOCYCLINE HCL [Concomitant]
     Active Substance: MINOCYCLINE HYDROCHLORIDE
  22. BIAXIN [Concomitant]
     Active Substance: CLARITHROMYCIN
  23. CLINDAMYCIN [Concomitant]
     Active Substance: CLINDAMYCIN\CLINDAMYCIN PHOSPHATE
  24. CHOLINE [Concomitant]
     Active Substance: CHOLINE
  25. INOSITOL [Concomitant]
     Active Substance: INOSITOL
  26. SELENIUM [Concomitant]
     Active Substance: SELENIUM
  27. CULTURELLE [Concomitant]
     Active Substance: LACTOBACILLUS RHAMNOSUS
  28. NORCO [Concomitant]
     Active Substance: ACETAMINOPHEN\HYDROCODONE BITARTRATE
  29. INDOMETHACIN. [Concomitant]
     Active Substance: INDOMETHACIN
  30. XYREM [Suspect]
     Active Substance: SODIUM OXYBATE
     Dosage: 4.5 G, BID
     Route: 048
     Dates: start: 201603
  31. DIPHENHYDRAMINE. [Concomitant]
     Active Substance: DIPHENHYDRAMINE
  32. VITAMIN D3 [Concomitant]
     Active Substance: CHOLECALCIFEROL
  33. XYREM [Suspect]
     Active Substance: SODIUM OXYBATE
     Indication: NARCOLEPSY
     Dosage: 2.25 G, BID
     Route: 048
     Dates: start: 201505, end: 201505
  34. FLEXERIL [Concomitant]
     Active Substance: CYCLOBENZAPRINE HYDROCHLORIDE
  35. COENZYME Q10+ [Concomitant]
  36. VAYACOG [Concomitant]
  37. CYMBALTA [Concomitant]
     Active Substance: DULOXETINE HYDROCHLORIDE
  38. SYSTANE (HYPROMELLOSE 2910 (4000 MPA.S)) [Concomitant]
     Active Substance: HYPROMELLOSE 2910 (4000 MPA.S)
  39. ADDERALL [Concomitant]
     Active Substance: AMPHETAMINE ASPARTATE\AMPHETAMINE SULFATE\DEXTROAMPHETAMINE SACCHARATE\DEXTROAMPHETAMINE SULFATE
  40. BIOTIN [Concomitant]
     Active Substance: BIOTIN
  41. NEOMYCIN AND POLYMYXIN B SULFATES AND HYDROCO [Concomitant]
  42. ORACEA [Concomitant]
     Active Substance: DOXYCYCLINE
  43. METHYLPHENIDATE. [Concomitant]
     Active Substance: METHYLPHENIDATE

REACTIONS (1)
  - Nasal septum deviation [Unknown]
